FAERS Safety Report 8495733-4 (Version None)
Quarter: 2012Q3

REPORT INFORMATION
  Report Type: 
  Country: None (occurrence: None)
  Receive Date: 20120709
  Receipt Date: 20120705
  Transmission Date: 20120928
  Serious: Yes (Hospitalization, Other)
  Sender: FDA-Public Use
  Company Number: FR-ROCHE-1084877

PATIENT
  Age: 80 Year
  Sex: Female

DRUGS (4)
  1. CYCLOPHOSPHAMIDE [Suspect]
     Indication: PRODUCT USED FOR UNKNOWN INDICATION
     Route: 042
  2. MABTHERA [Suspect]
     Indication: PRODUCT USED FOR UNKNOWN INDICATION
     Route: 042
     Dates: end: 20120412
  3. DOXORUBICIN HCL [Concomitant]
     Route: 042
     Dates: end: 20120412
  4. ONCOVIN [Concomitant]
     Route: 042

REACTIONS (1)
  - PULMONARY FIBROSIS [None]
